FAERS Safety Report 9640040 (Version 1)
Quarter: 2013Q4

REPORT INFORMATION
  Report Type: Report from Study
  Country: AR (occurrence: AR)
  Receive Date: 20131023
  Receipt Date: 20131023
  Transmission Date: 20140711
  Serious: Yes (Hospitalization)
  Sender: FDA-Public Use
  Company Number: PHHY2013AR118850

PATIENT
  Sex: Female

DRUGS (1)
  1. TOBI [Suspect]
     Indication: CYSTIC FIBROSIS
     Dosage: 2 DF, DAILY

REACTIONS (2)
  - Increased upper airway secretion [Recovered/Resolved]
  - Pyrexia [Recovered/Resolved]
